FAERS Safety Report 15391565 (Version 8)
Quarter: 2019Q1

REPORT INFORMATION
  Report Type: Report from Study
  Country: BE (occurrence: BE)
  Receive Date: 20180917
  Receipt Date: 20190116
  Transmission Date: 20190417
  Serious: Yes (Death, Hospitalization, Other)
  Sender: FDA-Public Use
  Company Number: BE-BAYER-2018-103494

PATIENT
  Age: 83 Year
  Sex: Male

DRUGS (20)
  1. NEXAVAR [Suspect]
     Active Substance: SORAFENIB
     Indication: HEPATOCELLULAR CARCINOMA
     Dosage: DAILY DOSE 800 MG
     Route: 048
     Dates: start: 20180707, end: 2018
  2. PARACETAMOL [Concomitant]
     Active Substance: ACETAMINOPHEN
     Dosage: UNK
  3. STEOVIT D3 [Concomitant]
     Active Substance: CALCIUM CARBONATE\CHOLECALCIFEROL
     Dosage: 1 G
     Dates: start: 201806
  4. METHYLPREDNISOLONE. [Concomitant]
     Active Substance: METHYLPREDNISOLONE
     Dosage: 16 MG
     Dates: start: 20180707
  5. METHYLPREDNISOLONE. [Concomitant]
     Active Substance: METHYLPREDNISOLONE
     Dosage: DAILY DOSE 160 MG
     Dates: start: 20180707
  6. NEXAVAR [Suspect]
     Active Substance: SORAFENIB
     Indication: HEPATOCELLULAR CARCINOMA
     Dosage: 400 MG DAILY DOSE
     Dates: start: 20180512, end: 201805
  7. NEXAVAR [Suspect]
     Active Substance: SORAFENIB
     Indication: HEPATOCELLULAR CARCINOMA
     Dosage: 400 MG DAILY DOSE
     Dates: end: 20190107
  8. PARACETAMOL [Concomitant]
     Active Substance: ACETAMINOPHEN
     Dosage: UNK UNK, PRN
     Dates: start: 201806
  9. AUGMENTIN [Concomitant]
     Active Substance: AMOXICILLIN\CLAVULANATE POTASSIUM
     Indication: SEPSIS
  10. PANTOPRAZOLE SODIUM. [Concomitant]
     Active Substance: PANTOPRAZOLE SODIUM
     Dosage: DAILY DOSE 40 MG
     Dates: start: 201806
  11. PANTOPRAZOLE [Concomitant]
     Active Substance: PANTOPRAZOLE
  12. METHYLPREDNISOLONE. [Concomitant]
     Active Substance: METHYLPREDNISOLONE
     Dosage: UNK
     Dates: start: 201806, end: 20180706
  13. NEXAVAR [Suspect]
     Active Substance: SORAFENIB
     Indication: HEPATOCELLULAR CARCINOMA
     Dosage: 800 MG DAILY DOSE
     Dates: start: 20180521, end: 20180609
  14. COVERAM [Concomitant]
     Active Substance: AMLODIPINE\PERINDOPRIL
     Indication: HYPERTENSION
     Dosage: DAILY DOSE 10 MG
     Dates: start: 2011, end: 20180706
  15. METHYLPREDNISOLONE. [Concomitant]
     Active Substance: METHYLPREDNISOLONE
     Dosage: DAILY DOSE 32 MG
     Dates: start: 201806, end: 20180706
  16. OXYNORM [Concomitant]
     Active Substance: OXYCODONE HYDROCHLORIDE
     Indication: PAIN
     Dosage: DAILY DOSE 5 MG
     Dates: start: 201806
  17. PARACETAMOL [Concomitant]
     Active Substance: ACETAMINOPHEN
     Dosage: 1G (IF NECESSARY)
     Dates: start: 201806
  18. MATRIFEN [Concomitant]
     Active Substance: FENTANYL
     Indication: PAIN
     Dosage: 12 MCG
     Dates: start: 201806
  19. ASAFLOW [Concomitant]
     Active Substance: ASPIRIN
     Dosage: DAILY DOSE 80 MG
     Dates: start: 2011
  20. DICLOFENAC [Concomitant]
     Active Substance: DICLOFENAC
     Dosage: 75 MG, BID
     Dates: start: 201806, end: 20180706

REACTIONS (28)
  - Malaise [Fatal]
  - Tumour pain [Recovering/Resolving]
  - Oedema peripheral [None]
  - Lumbar hernia [None]
  - Pain in extremity [Recovered/Resolved]
  - Weight decreased [None]
  - Weight decreased [Recovering/Resolving]
  - Diarrhoea [None]
  - Sepsis [None]
  - Waist circumference increased [None]
  - Back pain [Not Recovered/Not Resolved]
  - Abdominal pain [None]
  - Heart rate irregular [None]
  - Weight increased [None]
  - Medical device pain [None]
  - Hepatic pain [Recovered/Resolved]
  - Superinfection [None]
  - Fatigue [Recovering/Resolving]
  - Pruritus [None]
  - Pyrexia [None]
  - Fine motor skill dysfunction [None]
  - Medical device pain [None]
  - Asthenia [None]
  - Medical device pain [Recovering/Resolving]
  - Bradycardia [None]
  - Pain [None]
  - Hypertension [None]
  - Extrasystoles [Not Recovered/Not Resolved]

NARRATIVE: CASE EVENT DATE: 20180514
